FAERS Safety Report 19709644 (Version 5)
Quarter: 2022Q2

REPORT INFORMATION
  Report Type: Spontaneous
  Country: US (occurrence: US)
  Receive Date: 20210817
  Receipt Date: 20220510
  Transmission Date: 20220721
  Serious: No
  Sender: FDA-Public Use
  Company Number: US-PFIZER INC-202100932562

PATIENT
  Age: 68 Year
  Sex: Female
  Weight: 61.23 kg

DRUGS (2)
  1. GENOTROPIN [Suspect]
     Active Substance: SOMATROPIN
     Indication: Blood growth hormone abnormal
     Dosage: 0.5 MG
     Dates: start: 20210720
  2. GENOTROPIN [Suspect]
     Active Substance: SOMATROPIN
     Dosage: 0.4 MG, DAILY
     Dates: start: 202107

REACTIONS (8)
  - Eye discharge [Unknown]
  - Nasopharyngitis [Unknown]
  - Sinusitis [Unknown]
  - Rhinorrhoea [Unknown]
  - Device use error [Unknown]
  - Wrong device used [Unknown]
  - Wrong technique in device usage process [Unknown]
  - Device information output issue [Unknown]

NARRATIVE: CASE EVENT DATE: 20210720
